FAERS Safety Report 9500301 (Version 3)
Quarter: 2013Q4

REPORT INFORMATION
  Report Type: Spontaneous
  Country: US (occurrence: None)
  Receive Date: 20130107
  Receipt Date: 20131226
  Transmission Date: 20140711
  Serious: Yes (Other)
  Sender: FDA-Public Use
  Company Number: PHHY2012US098218

PATIENT
  Age: 56 Year
  Sex: Female

DRUGS (6)
  1. GILENYA [Suspect]
     Indication: MULTIPLE SCLEROSIS
     Route: 048
     Dates: start: 20120507
  2. GLIPIZIDE (GLIPIZIDE) [Concomitant]
  3. ASPIRIN (ACETYLSALICYLIC ACID) [Concomitant]
  4. LISINOPRIL (LISINOPRIL) [Concomitant]
  5. SIMVASTATIN (SIMVASTATIN) [Concomitant]
  6. BACLOFEN (BACLOFEN) [Concomitant]

REACTIONS (5)
  - Fluid retention [None]
  - Breast swelling [None]
  - Rhinorrhoea [None]
  - Pyrexia [None]
  - Influenza [None]
